FAERS Safety Report 6641478-2 (Version None)
Quarter: 2010Q1

REPORT INFORMATION
  Report Type: 
  Country: None (occurrence: None)
  Receive Date: 20100318
  Receipt Date: 20100309
  Transmission Date: 20100710
  Serious: Yes (Hospitalization)
  Sender: FDA-Public Use
  Company Number: US-MERCK-1003USA01373

PATIENT
  Age: 63 Year
  Sex: Female

DRUGS (4)
  1. FOSAMAX [Suspect]
     Indication: OSTEOPENIA
     Route: 048
     Dates: start: 19950101
  2. VITAMINS (UNSPECIFIED) [Concomitant]
     Route: 065
  3. MAXZIDE [Concomitant]
     Route: 065
  4. BONIVA [Suspect]
     Route: 065
     Dates: end: 20090401

REACTIONS (5)
  - FEMUR FRACTURE [None]
  - FOOT FRACTURE [None]
  - THROAT TIGHTNESS [None]
  - UPPER LIMB FRACTURE [None]
  - WRIST FRACTURE [None]
